FAERS Safety Report 6678557-X (Version None)
Quarter: 2010Q2

REPORT INFORMATION
  Report Type: 
  Country: None (occurrence: None)
  Receive Date: 20100408
  Receipt Date: 20100325
  Transmission Date: 20101027
  Serious: Yes (Life-Threatening)
  Sender: FDA-Public Use
  Company Number: 547004

PATIENT
  Sex: Female

DRUGS (4)
  1. PACLITAXEL [Suspect]
     Dosage: 245 G INTRAVENOUS
     Route: 042
     Dates: end: 20100310
  2. CHLORPHENIRAMINE MALEATE [Concomitant]
  3. DEXAMETHASONE [Concomitant]
  4. (PARACETAMOL) [Concomitant]

REACTIONS (2)
  - BACK PAIN [None]
  - DRUG HYPERSENSITIVITY [None]
